FAERS Safety Report 9731646 (Version 1)
Quarter: 2013Q4

REPORT INFORMATION
  Report Type: Spontaneous
  Country: US (occurrence: None)
  Receive Date: 20131204
  Receipt Date: 20131204
  Transmission Date: 20140711
  Serious: Yes (Life-Threatening, Hospitalization)
  Sender: FDA-Public Use
  Company Number: None

PATIENT
  Age: 46 Year
  Sex: Female
  Weight: 70.31 kg

DRUGS (5)
  1. CYMBALTA [Suspect]
     Indication: FIBROMYALGIA
     Dosage: AT  BADTIME, BY MOUTH
     Dates: start: 2009, end: 201212
  2. CYMBALTA [Suspect]
     Indication: DEPRESSION
     Dosage: AT  BADTIME, BY MOUTH
     Dates: start: 2009, end: 201212
  3. CYMBALTA [Suspect]
     Indication: ANXIETY
     Dosage: AT  BADTIME, BY MOUTH
     Dates: start: 2009, end: 201212
  4. CYMBALTA [Suspect]
     Indication: PANIC ATTACK
     Dosage: AT  BADTIME, BY MOUTH
     Dates: start: 2009, end: 201212
  5. CYMBALTA [Suspect]
     Dosage: AT  BADTIME, BY MOUTH
     Dates: start: 2009, end: 201212

REACTIONS (13)
  - Drug dose omission [None]
  - Convulsion [None]
  - Aggression [None]
  - Cardiomyopathy [None]
  - Stress [None]
  - Insomnia [None]
  - Withdrawal syndrome [None]
  - No therapeutic response [None]
  - Speech disorder [None]
  - Pain [None]
  - Muscle spasms [None]
  - Cognitive disorder [None]
  - Cardiac disorder [None]
